FAERS Safety Report 13299621 (Version 1)
Quarter: 2017Q1

REPORT INFORMATION
  Report Type: Report from Study
  Country: None (occurrence: PA)
  Receive Date: 20170306
  Receipt Date: 20170306
  Transmission Date: 20170428
  Serious: Yes (Death, Hospitalization)
  Sender: FDA-Public Use
  Company Number: PA-ABBVIE-17P-125-1894181-00

PATIENT
  Age: 71 Year
  Sex: Female

DRUGS (1)
  1. ZEMPLAR [Suspect]
     Active Substance: PARICALCITOL
     Indication: HYPERPARATHYROIDISM SECONDARY
     Route: 048
     Dates: start: 20170203, end: 20170227

REACTIONS (3)
  - Bradycardia [Fatal]
  - Hyperglycaemia [Fatal]
  - Hypotension [Fatal]

NARRATIVE: CASE EVENT DATE: 20170228
